FAERS Safety Report 21265260 (Version 1)
Quarter: 2022Q3

REPORT INFORMATION
  Report Type: Report from Study
  Country: AU (occurrence: None)
  Receive Date: 20220829
  Receipt Date: 20220829
  Transmission Date: 20221026
  Serious: Yes (Hospitalization)
  Sender: FDA-Public Use
  Company Number: AU-ROCHE-3055284

PATIENT
  Age: 76 Year
  Sex: Male
  Weight: 78 kg

DRUGS (50)
  1. CYCLOPHOSPHAMIDE [Suspect]
     Active Substance: CYCLOPHOSPHAMIDE
     Indication: Diffuse large B-cell lymphoma
     Dosage: ON 11/MAR/2022 FROM 07:15 PM TO 07:45 PM, HE RECEIVED MOST RECENT DOSE OF STUDY DRUG PRIOR TO AE/SAE
     Route: 042
     Dates: start: 20220311
  2. DOXORUBICIN [Suspect]
     Active Substance: DOXORUBICIN
     Indication: Diffuse large B-cell lymphoma
     Dosage: ON 11/MAR/2022 FROM 04:03 PM TO 04:46 PM, HE RECEIVED MOST RECENT DOSE OF DRUG PRIOR AE/SAE 50 MG/M2
     Route: 042
     Dates: start: 20220311
  3. PREDNISONE [Suspect]
     Active Substance: PREDNISONE
     Indication: Diffuse large B-cell lymphoma
     Dosage: ON 13/MAR/2022, HE RECEIVED MOST RECENT DOSE OF DRUG PRIOR AE/SAE WAS 0 MG.
     Route: 048
     Dates: start: 20220313
  4. PREDNISONE [Suspect]
     Active Substance: PREDNISONE
     Dosage: ON 14/MAR/2022, HE RECEIVED MOST RECENT DOSE OF DRUG PRIOR AE/SAE WAS 0 MG.
     Route: 048
     Dates: start: 20220311
  5. RITUXIMAB [Suspect]
     Active Substance: RITUXIMAB
     Indication: Diffuse large B-cell lymphoma
     Dosage: ON 11/MAR/2022 SHE RECEIVED THE MOST RECENT DOSE OF RITUXIMAB (375 MG/M2) PRIOR TO AE/SAE
     Route: 041
     Dates: start: 20220311
  6. POLATUZUMAB VEDOTIN [Suspect]
     Active Substance: POLATUZUMAB VEDOTIN
     Indication: Diffuse large B-cell lymphoma
     Dosage: DOSE LAST STUDY DRUG ADMIN PRIOR SAE 136 MG?END DATE OF MOST RECENT DOSE OF STUDY DRUG PRIOR TO AE 1
     Route: 042
     Dates: start: 20220311
  7. VALACYCLOVIR HYDROCHLORIDE [Concomitant]
     Active Substance: VALACYCLOVIR HYDROCHLORIDE
     Route: 048
     Dates: start: 20220304
  8. ACETAMINOPHEN [Concomitant]
     Active Substance: ACETAMINOPHEN
     Route: 048
     Dates: start: 20220311, end: 20220311
  9. ACETAMINOPHEN [Concomitant]
     Active Substance: ACETAMINOPHEN
     Route: 048
     Dates: start: 20220331, end: 20220331
  10. ACETAMINOPHEN [Concomitant]
     Active Substance: ACETAMINOPHEN
     Route: 048
     Dates: start: 20220407, end: 20220407
  11. ACETAMINOPHEN [Concomitant]
     Active Substance: ACETAMINOPHEN
     Dates: start: 20220304
  12. ACETAMINOPHEN [Concomitant]
     Active Substance: ACETAMINOPHEN
     Dates: start: 20220414, end: 20220414
  13. ACETAMINOPHEN [Concomitant]
     Active Substance: ACETAMINOPHEN
     Route: 048
     Dates: start: 20220512, end: 20220512
  14. ACETAMINOPHEN [Concomitant]
     Active Substance: ACETAMINOPHEN
     Route: 048
     Dates: start: 20220428, end: 20220428
  15. ACETAMINOPHEN [Concomitant]
     Active Substance: ACETAMINOPHEN
     Route: 048
     Dates: start: 20210421, end: 20210421
  16. LORATADINE [Concomitant]
     Active Substance: LORATADINE
     Indication: Premedication
     Route: 048
     Dates: start: 20220311, end: 20220311
  17. LORATADINE [Concomitant]
     Active Substance: LORATADINE
     Route: 048
     Dates: start: 20220331, end: 20220331
  18. LORATADINE [Concomitant]
     Active Substance: LORATADINE
     Route: 048
     Dates: start: 20220407, end: 20220407
  19. LORATADINE [Concomitant]
     Active Substance: LORATADINE
     Route: 048
     Dates: start: 20220414, end: 20220414
  20. LORATADINE [Concomitant]
     Active Substance: LORATADINE
     Route: 048
     Dates: start: 20220428, end: 20220428
  21. LORATADINE [Concomitant]
     Active Substance: LORATADINE
     Route: 048
     Dates: start: 20220421, end: 20220421
  22. LORATADINE [Concomitant]
     Active Substance: LORATADINE
     Route: 048
     Dates: start: 20220512, end: 20220512
  23. PREDNISOLONE [Concomitant]
     Active Substance: PREDNISOLONE
     Indication: Premedication
     Route: 048
     Dates: start: 20220311, end: 20220311
  24. PREDNISOLONE [Concomitant]
     Active Substance: PREDNISOLONE
     Dates: start: 20220310
  25. PREDNISOLONE [Concomitant]
     Active Substance: PREDNISOLONE
     Route: 048
     Dates: start: 20220421, end: 20220421
  26. PREDNISOLONE [Concomitant]
     Active Substance: PREDNISOLONE
     Route: 048
     Dates: start: 20220512, end: 20220512
  27. PALONOSETRON [Concomitant]
     Active Substance: PALONOSETRON
     Indication: Premedication
     Route: 042
     Dates: start: 20220311, end: 20220311
  28. PALONOSETRON [Concomitant]
     Active Substance: PALONOSETRON
     Route: 042
     Dates: start: 20210331, end: 20210331
  29. PALONOSETRON [Concomitant]
     Active Substance: PALONOSETRON
     Route: 042
     Dates: start: 20220421, end: 20220421
  30. PALONOSETRON [Concomitant]
     Active Substance: PALONOSETRON
     Route: 042
     Dates: start: 20220512, end: 20220512
  31. DEXAMETHASONE [Concomitant]
     Active Substance: DEXAMETHASONE
     Route: 042
     Dates: start: 20220407, end: 20220407
  32. DEXAMETHASONE [Concomitant]
     Active Substance: DEXAMETHASONE
     Route: 042
     Dates: start: 20220414, end: 20220414
  33. DEXAMETHASONE [Concomitant]
     Active Substance: DEXAMETHASONE
     Route: 042
     Dates: start: 20220428, end: 20220428
  34. DEXAMETHASONE [Concomitant]
     Active Substance: DEXAMETHASONE
     Route: 042
     Dates: start: 20220519, end: 20220519
  35. SULFAMETHOXAZOLE\TRIMETHOPRIM [Concomitant]
     Active Substance: SULFAMETHOXAZOLE\TRIMETHOPRIM
     Dates: start: 20220304
  36. PANTOPRAZOLE [Concomitant]
     Active Substance: PANTOPRAZOLE
     Indication: Gastrointestinal disorder prophylaxis
     Route: 048
     Dates: start: 20220304
  37. METOPROLOL [Concomitant]
     Active Substance: METOPROLOL
     Indication: Atrial fibrillation
     Route: 048
     Dates: start: 20220303
  38. METOPROLOL [Concomitant]
     Active Substance: METOPROLOL
     Indication: Hypertension
  39. ALLOPURINOL [Concomitant]
     Active Substance: ALLOPURINOL
     Route: 048
     Dates: start: 20220304
  40. METHYL SALICYLATE\PEPPERMINT OIL\SODIUM BICARBONATE\SODIUM CHLORIDE [Concomitant]
     Active Substance: METHYL SALICYLATE\PEPPERMINT OIL\SODIUM BICARBONATE\SODIUM CHLORIDE
     Dates: start: 20220310
  41. METOCLOPRAMIDE [Concomitant]
     Active Substance: METOCLOPRAMIDE
     Dates: start: 20220310
  42. LIPEGFILGRASTIM [Concomitant]
     Active Substance: LIPEGFILGRASTIM
     Dosage: 6 MG/0.6 ML
     Dates: start: 20220314
  43. POLYETHYLENE GLYCOLS [Concomitant]
     Active Substance: POLYETHYLENE GLYCOLS
     Indication: Constipation
     Dates: start: 20220323
  44. MORPHINE [Concomitant]
     Active Substance: MORPHINE
     Dates: start: 20220323
  45. LACTULOSE [Concomitant]
     Active Substance: LACTULOSE
     Dates: start: 20220301, end: 20220301
  46. LORAZEPAM [Concomitant]
     Active Substance: LORAZEPAM
     Dates: start: 20220308, end: 20220323
  47. ALBUMIN HUMAN [Concomitant]
     Active Substance: ALBUMIN HUMAN
     Indication: Hypoalbuminaemia
     Dates: start: 20220313, end: 20220319
  48. ALBUMIN HUMAN [Concomitant]
     Active Substance: ALBUMIN HUMAN
     Dates: start: 20220323, end: 20220323
  49. VANCOMYCIN [Concomitant]
     Active Substance: VANCOMYCIN
     Indication: Clostridium difficile infection
     Dates: start: 20220321, end: 20220330
  50. RASBURICASE [Concomitant]
     Active Substance: RASBURICASE
     Indication: Tumour lysis syndrome
     Dates: start: 20220222, end: 20220316

REACTIONS (1)
  - Abdominal pain [Recovered/Resolved]

NARRATIVE: CASE EVENT DATE: 20220314
